FAERS Safety Report 7094811-4 (Version None)
Quarter: 2010Q4

REPORT INFORMATION
  Report Type: 
  Country: None (occurrence: None)
  Receive Date: 20101111
  Receipt Date: 20101029
  Transmission Date: 20110411
  Serious: Yes (Death)
  Sender: FDA-Public Use
  Company Number: BR-ACTELION-A-CH2010-35719

PATIENT
  Sex: Female

DRUGS (3)
  1. BOSENTAN TABLET 62.5 MG ROW [Suspect]
     Indication: PULMONARY ARTERIAL HYPERTENSION
     Dosage: 125 MG, BID
     Route: 048
     Dates: start: 20091101, end: 20100105
  2. BOSENTAN TABLET 62.5 MG ROW [Suspect]
     Dosage: 62.5 MG, BID
     Route: 048
     Dates: start: 20091001
  3. SILDENAFIL CITRATE [Concomitant]
     Dosage: 50 MG, BID
     Dates: start: 20060601

REACTIONS (3)
  - CARDIAC FAILURE ACUTE [None]
  - DISEASE PROGRESSION [None]
  - PULMONARY ARTERIAL HYPERTENSION [None]
